FAERS Safety Report 11699572 (Version 2)
Quarter: 2015Q4

REPORT INFORMATION
  Report Type: Report from Study
  Country: GB (occurrence: GB)
  Receive Date: 20151105
  Receipt Date: 20151204
  Transmission Date: 20160304
  Serious: Yes (Death, Hospitalization, Other)
  Sender: FDA-Public Use
  Company Number: GB-AMGEN-GBRNI2015115241

PATIENT
  Age: 73 Year
  Sex: Female

DRUGS (1)
  1. ETANERCEPT [Suspect]
     Active Substance: ETANERCEPT
     Indication: RHEUMATOID ARTHRITIS
     Dosage: UNK
     Route: 065
     Dates: start: 20050707, end: 20050713

REACTIONS (4)
  - Dementia [Fatal]
  - Squamous cell carcinoma [Fatal]
  - Pneumonia aspiration [Fatal]
  - Vascular dementia [Fatal]
